FAERS Safety Report 26160145 (Version 1)
Quarter: 2025Q4

REPORT INFORMATION
  Report Type: Spontaneous
  Country: US (occurrence: US)
  Receive Date: 20251216
  Receipt Date: 20251216
  Transmission Date: 20260118
  Serious: No
  Sender: ELI LILLY AND COMPANY
  Company Number: US-ELI_LILLY_AND_COMPANY-US202512006310

PATIENT
  Age: 84 Year
  Sex: Female

DRUGS (1)
  1. ZEPBOUND [Suspect]
     Active Substance: TIRZEPATIDE
     Indication: Weight control
     Dosage: 5 MG, UNKNOWN
     Route: 065
     Dates: start: 20250912

REACTIONS (5)
  - Chest discomfort [Unknown]
  - Faeces discoloured [Unknown]
  - Vomiting [Unknown]
  - Eructation [Unknown]
  - Alopecia [Unknown]

NARRATIVE: CASE EVENT DATE: 20251128
